FAERS Safety Report 12608421 (Version 3)
Quarter: 2019Q1

REPORT INFORMATION
  Report Type: Spontaneous
  Country: US (occurrence: US)
  Receive Date: 20160729
  Receipt Date: 20190117
  Transmission Date: 20190417
  Serious: Yes (Hospitalization)
  Sender: FDA-Public Use
  Company Number: US-ASTRAZENECA-2016SE80443

PATIENT
  Age: 72 Year
  Sex: Male
  Weight: 81.6 kg

DRUGS (11)
  1. ROSUVASTATIN. [Suspect]
     Active Substance: ROSUVASTATIN
     Indication: MYOCARDIAL INFARCTION
     Route: 048
  2. ALPRAZOLAM. [Concomitant]
     Active Substance: ALPRAZOLAM
     Dosage: AS NEEDED
  3. ASPIRIN. [Concomitant]
     Active Substance: ASPIRIN
  4. CARVEDILOL. [Concomitant]
     Active Substance: CARVEDILOL
     Indication: BLOOD PRESSURE MEASUREMENT
  5. BRILINTA [Suspect]
     Active Substance: TICAGRELOR
     Indication: ACUTE CORONARY SYNDROME
     Route: 048
     Dates: start: 201510
  6. VITAMIN B12 [Concomitant]
     Active Substance: CYANOCOBALAMIN
  7. BRILINTA [Suspect]
     Active Substance: TICAGRELOR
     Indication: MYOCARDIAL INFARCTION
     Route: 048
     Dates: start: 201510
  8. LOSARTAN. [Concomitant]
     Active Substance: LOSARTAN
     Dosage: 100 MG
  9. AMLODIPINE [Concomitant]
     Active Substance: AMLODIPINE BESYLATE
     Dosage: 5.0MG AS REQUIRED
  10. FOLIC ACID. [Concomitant]
     Active Substance: FOLIC ACID
  11. COQ10 [Concomitant]
     Active Substance: UBIDECARENONE

REACTIONS (10)
  - Myocardial infarction [Unknown]
  - Infection [Unknown]
  - Gait disturbance [Unknown]
  - Nausea [Unknown]
  - Chromaturia [Unknown]
  - Communication disorder [Unknown]
  - Platelet count decreased [Unknown]
  - Cervicogenic vertigo [Unknown]
  - Memory impairment [Unknown]
  - Cervical neuritis [Unknown]

NARRATIVE: CASE EVENT DATE: 2016
